FAERS Safety Report 17048526 (Version 1)
Quarter: 2019Q4

REPORT INFORMATION
  Report Type: Spontaneous
  Country: JP (occurrence: JP)
  Receive Date: 20191119
  Receipt Date: 20191119
  Transmission Date: 20200122
  Serious: Yes (Other)
  Sender: FDA-Public Use
  Company Number: JP-PFIZER INC-2019492249

PATIENT
  Age: 8 Decade
  Sex: Female

DRUGS (1)
  1. METHOTREXATE SODIUM. [Suspect]
     Active Substance: METHOTREXATE SODIUM
     Indication: RHEUMATOID ARTHRITIS
     Dosage: UNK
     Route: 048

REACTIONS (5)
  - Lymphoproliferative disorder [Unknown]
  - Vasculitis [Unknown]
  - Epstein-Barr virus infection [Unknown]
  - Necrosis [Unknown]
  - Intestinal perforation [Unknown]
